FAERS Safety Report 7581890-0 (Version None)
Quarter: 2011Q2

REPORT INFORMATION
  Report Type: 
  Country: None (occurrence: None)
  Receive Date: 20110629
  Receipt Date: 20101208
  Transmission Date: 20111010
  Serious: Yes (Other)
  Sender: FDA-Public Use
  Company Number: PHHY2010DE92294

PATIENT
  Age: 68 Year
  Sex: Male

DRUGS (10)
  1. PREDNISONE [Concomitant]
  2. INTERFERON [Concomitant]
  3. DEXAMETHASONE [Concomitant]
  4. VINCRISTINE [Concomitant]
  5. ASPIRIN [Concomitant]
  6. ZOLEDRONIC ACID [Suspect]
     Dosage: UNK
     Route: 042
  7. ETIDRONIC ACID [Suspect]
     Dosage: UNK
     Route: 042
  8. MELPHALAN HYDROCHLORIDE [Concomitant]
  9. PAMIDRONATE DISODIUM [Suspect]
     Dosage: UNK
     Route: 042
  10. DOXORUBICIN HCL [Concomitant]

REACTIONS (1)
  - OSTEONECROSIS OF JAW [None]
